FAERS Safety Report 4685524-4 (Version None)
Quarter: 2005Q2

REPORT INFORMATION
  Report Type: 
  Country: None (occurrence: None)
  Receive Date: 20050608
  Receipt Date: 20050601
  Transmission Date: 20051028
  Serious: Yes (Life-Threatening)
  Sender: FDA-Public Use
  Company Number: 2005AP03176

PATIENT
  Age: 51 Year
  Sex: Male

DRUGS (3)
  1. DIPRIVAN [Suspect]
     Indication: GENERAL ANAESTHESIA
     Route: 042
  2. FENTANYL [Concomitant]
     Indication: ANAESTHESIA
  3. VECURONIUM BROMIDE [Concomitant]
     Indication: HYPOTONIA

REACTIONS (5)
  - BLOOD PRESSURE FLUCTUATION [None]
  - CARDIAC INDEX INCREASED [None]
  - HYPERTHERMIA MALIGNANT [None]
  - OXYGEN SATURATION DECREASED [None]
  - TACHYCARDIA [None]
